FAERS Safety Report 21140925 (Version 2)
Quarter: 2022Q3

REPORT INFORMATION
  Report Type: Report from Study
  Country: FR (occurrence: FR)
  Receive Date: 20220728
  Receipt Date: 20220808
  Transmission Date: 20221027
  Serious: Yes (Other)
  Sender: FDA-Public Use
  Company Number: FR-BRISTOL-MYERS SQUIBB COMPANY-2022-036694

PATIENT
  Age: 85 Year
  Sex: Female
  Weight: 60 kg

DRUGS (3)
  1. ISTODAX [Suspect]
     Active Substance: ROMIDEPSIN
     Indication: Peripheral T-cell lymphoma unspecified
     Dosage: ON DAY 1, DAY 8 AND DAY 15 OF 28-DAY CYCLE.
     Route: 065
     Dates: start: 20200128
  2. ISTODAX [Suspect]
     Active Substance: ROMIDEPSIN
     Route: 065
     Dates: end: 20220408
  3. ONDANSETRON [Concomitant]
     Active Substance: ONDANSETRON
     Indication: Vomiting
     Route: 065

REACTIONS (1)
  - Depression [Unknown]
